FAERS Safety Report 6004633-0 (Version None)
Quarter: 2008Q4

REPORT INFORMATION
  Report Type: 
  Country: None (occurrence: None)
  Receive Date: 20081216
  Receipt Date: 20081208
  Transmission Date: 20090506
  Serious: Yes (Death, Other)
  Sender: FDA-Public Use
  Company Number: US-TYCO HEALTHCARE/MALLINCKRODT-T200802084

PATIENT

DRUGS (2)
  1. OPTIMARK [Suspect]
     Dosage: UNK
     Route: 042
     Dates: start: 20050623, end: 20050623
  2. OMNISCAN [Suspect]
     Dosage: UNK
     Route: 042
     Dates: start: 20050705, end: 20050705

REACTIONS (1)
  - NEPHROGENIC SYSTEMIC FIBROSIS [None]
